FAERS Safety Report 24266180 (Version 1)
Quarter: 2024Q3

REPORT INFORMATION
  Report Type: Spontaneous
  Country: US (occurrence: None)
  Receive Date: 20240830
  Receipt Date: 20240830
  Transmission Date: 20241016
  Serious: No
  Sender: AXSOME THERAPEUTICS
  Company Number: US-Axsome Therapeutics, Inc.-AXS202405-000748

PATIENT
  Sex: Male
  Weight: 83.91 kg

DRUGS (3)
  1. AUVELITY [Suspect]
     Active Substance: BUPROPION HYDROCHLORIDE\DEXTROMETHORPHAN HYDROBROMIDE
     Indication: Major depression
     Dosage: 3-4 WEEKS ON ONCE DAILY.
     Route: 065
  2. AUVELITY [Suspect]
     Active Substance: BUPROPION HYDROCHLORIDE\DEXTROMETHORPHAN HYDROBROMIDE
     Route: 065
     Dates: start: 2024
  3. LEXAPRO [Concomitant]
     Active Substance: ESCITALOPRAM OXALATE
     Indication: Product used for unknown indication
     Dosage: WEANING OFF LEXAPRO
     Route: 065

REACTIONS (3)
  - Ejaculation failure [Recovering/Resolving]
  - Sexual dysfunction [Recovering/Resolving]
  - Ejaculation delayed [Recovering/Resolving]

NARRATIVE: CASE EVENT DATE: 20240101
